FAERS Safety Report 4787242-0 (Version None)
Quarter: 2005Q3

REPORT INFORMATION
  Report Type: 
  Country: None (occurrence: None)
  Receive Date: 20050930
  Receipt Date: 20050916
  Transmission Date: 20060218
  Serious: Yes (Other)
  Sender: FDA-Public Use
  Company Number: MEDI-0003668

PATIENT
  Age: 62 Year
  Sex: Male
  Weight: 78.4723 kg

DRUGS (5)
  1. ETHYOL [Suspect]
     Indication: CHEMOTHERAPY
     Dosage: 500 MG, 5 IN 1 WK, SUBCUTANEOUS
     Route: 058
     Dates: start: 20050803, end: 20050826
  2. CISPLATIN [Concomitant]
  3. RADIATION THERAPY [Concomitant]
  4. ANTIBIOTIC (UNSPECIFIED) [Concomitant]
  5. BARKA SOLUTION [Concomitant]

REACTIONS (2)
  - DEPRESSION [None]
  - EATING DISORDER [None]
